FAERS Safety Report 5645312-9 (Version None)
Quarter: 2008Q1

REPORT INFORMATION
  Report Type: 
  Country: None (occurrence: None)
  Receive Date: 20080229
  Receipt Date: 20080228
  Transmission Date: 20080703
  Serious: Yes (Other)
  Sender: FDA-Public Use
  Company Number: A0712705A

PATIENT
  Age: 81 Year
  Sex: Male

DRUGS (12)
  1. COREG [Suspect]
     Indication: DRUG USE FOR UNKNOWN INDICATION
     Route: 065
  2. DEMADEX [Suspect]
     Indication: DRUG USE FOR UNKNOWN INDICATION
     Route: 048
  3. HYDROCHLOROTHIAZIDE [Suspect]
     Indication: DRUG USE FOR UNKNOWN INDICATION
     Route: 048
  4. FUROSEMIDE [Suspect]
     Indication: DRUG USE FOR UNKNOWN INDICATION
     Dosage: 40MG TWICE PER DAY
     Route: 048
  5. PACERONE [Suspect]
     Indication: VENTRICULAR FIBRILLATION
     Dosage: 200MG PER DAY
     Route: 048
  6. ASPIRIN [Concomitant]
  7. COUMADIN [Concomitant]
  8. LISINOPRIL [Concomitant]
  9. POTASSIUM CHLORIDE [Concomitant]
     Dates: start: 20070915
  10. VITAMIN [Concomitant]
     Dates: start: 20070915
  11. ZOCOR [Concomitant]
  12. ALDACTONE [Concomitant]

REACTIONS (15)
  - ACCIDENTAL OVERDOSE [None]
  - BLOOD POTASSIUM INCREASED [None]
  - DIZZINESS [None]
  - DRUG INTERACTION [None]
  - FATIGUE [None]
  - HEADACHE [None]
  - HYPOTENSION [None]
  - INTERNATIONAL NORMALISED RATIO INCREASED [None]
  - MOBILITY DECREASED [None]
  - MYALGIA [None]
  - PAIN [None]
  - SOMNOLENCE [None]
  - THIRST [None]
  - VENTRICULAR FIBRILLATION [None]
  - VISUAL DISTURBANCE [None]
